FAERS Safety Report 12140385 (Version 2)
Quarter: 2016Q1

REPORT INFORMATION
  Report Type: Report from Study
  Country: BR (occurrence: BR)
  Receive Date: 20160303
  Receipt Date: 20160324
  Transmission Date: 20160526
  Serious: Yes (Hospitalization)
  Sender: FDA-Public Use
  Company Number: PHHO2015BR021357

PATIENT
  Age: 58 Year
  Sex: Female
  Weight: 68.4 kg

DRUGS (10)
  1. BLINDED BKM120 [Suspect]
     Active Substance: BUPARLISIB HYDROCHLORIDE
     Dosage: CODE NOT BROKEN
     Dates: start: 20151217, end: 20151217
  2. BLINDED BYL719 [Suspect]
     Active Substance: ALPELISIB
     Indication: BREAST CANCER
     Dosage: CODE NOT BROKEN
     Route: 048
     Dates: start: 20151207, end: 20151215
  3. BLINDED BYL719 [Suspect]
     Active Substance: ALPELISIB
     Dosage: CODE NOT BROKEN
     Dates: start: 20151217, end: 20151217
  4. ANGIPRESS [Concomitant]
     Active Substance: ATENOLOL
     Indication: HYPERTENSION
     Dosage: 25 MG, UNK
     Route: 065
     Dates: start: 1998
  5. BLINDED NO TREATMENT RECEIVED [Suspect]
     Active Substance: INVESTIGATIONAL PRODUCT
     Indication: BREAST CANCER
     Dosage: CODE NOT BROKEN
     Route: 048
     Dates: start: 20151207, end: 20151215
  6. BLINDED PLACEBO [Suspect]
     Active Substance: INVESTIGATIONAL PRODUCT
     Indication: BREAST CANCER
     Dosage: CODE NOT BROKEN
     Route: 048
     Dates: start: 20151207, end: 20151215
  7. BLINDED PLACEBO [Suspect]
     Active Substance: INVESTIGATIONAL PRODUCT
     Dosage: CODE NOT BROKEN
     Dates: start: 20151217, end: 20151217
  8. COMPARATOR LETROZOLE [Suspect]
     Active Substance: LETROZOLE
     Indication: BREAST CANCER
     Dosage: 2.5 MG, BID
     Route: 048
     Dates: start: 20151207
  9. BLINDED BKM120 [Suspect]
     Active Substance: BUPARLISIB HYDROCHLORIDE
     Indication: BREAST CANCER
     Dosage: CODE NOT BROKEN
     Route: 048
     Dates: start: 20151207, end: 20151215
  10. BLINDED NO TREATMENT RECEIVED [Suspect]
     Active Substance: INVESTIGATIONAL PRODUCT
     Dosage: CODE NOT BROKEN
     Dates: start: 20151217, end: 20151217

REACTIONS (2)
  - Hyperglycaemia [Recovering/Resolving]
  - Rash [Recovered/Resolved]

NARRATIVE: CASE EVENT DATE: 20151218
